FAERS Safety Report 12840016 (Version 1)
Quarter: 2016Q4

REPORT INFORMATION
  Report Type: Spontaneous
  Country: CY (occurrence: CY)
  Receive Date: 20161012
  Receipt Date: 20161012
  Transmission Date: 20170207
  Serious: Yes (Other)
  Sender: FDA-Public Use
  Company Number: CY-PFIZER INC-2016423165

PATIENT
  Age: 56 Year
  Sex: Female

DRUGS (3)
  1. LYRICA [Suspect]
     Active Substance: PREGABALIN
     Dosage: 325 MG, DAILY (150 MG IN THE MORNING, 25 MG IN THE AFTERNOON, 150 MG IN THE NIGHT)
  2. LYRICA [Suspect]
     Active Substance: PREGABALIN
     Indication: NEUROPATHY PERIPHERAL
     Dosage: 75 MG, 2X/DAY (IN THE MORNING AND IN THE NIGHT)
  3. LYRICA [Suspect]
     Active Substance: PREGABALIN
     Dosage: 150 MG, 2X/DAY (IN THE MORNING AND IN THE NIGHT)

REACTIONS (3)
  - Pancytopenia [Unknown]
  - Infection [Recovered/Resolved]
  - White blood cell count decreased [Unknown]
